FAERS Safety Report 4501518-3 (Version None)
Quarter: 2004Q4

REPORT INFORMATION
  Report Type: 
  Country: None (occurrence: None)
  Receive Date: 20041109
  Receipt Date: 20041025
  Transmission Date: 20050328
  Serious: Yes (Hospitalization)
  Sender: FDA-Public Use
  Company Number: 2004GB02535

PATIENT
  Age: 38 Year
  Sex: Male
  Weight: 55 kg

DRUGS (4)
  1. OMEPRAZOLE [Suspect]
     Indication: DYSPEPSIA
     Dosage: 40 MG BID
     Dates: start: 20040815
  2. OMEPRAZOLE [Suspect]
     Indication: FUNGAL INFECTION
     Dosage: 40 MG BID
     Dates: start: 20040815
  3. VORICONAZOLE [Suspect]
     Indication: GASTROINTESTINAL CANDIDIASIS
     Dosage: 200 MG BID PO
     Route: 048
     Dates: start: 20040820, end: 20040915
  4. DOMPERIDONE [Concomitant]

REACTIONS (8)
  - COLLAPSE OF LUNG [None]
  - DRUG INTERACTION [None]
  - DRUG LEVEL INCREASED [None]
  - GASTROINTESTINAL CANDIDIASIS [None]
  - NEUTROPENIA [None]
  - PERICARDIAL EFFUSION [None]
  - SUPRAVENTRICULAR TACHYCARDIA [None]
  - VENTRICULAR DYSFUNCTION [None]
